FAERS Safety Report 5033253-X (Version None)
Quarter: 2006Q2

REPORT INFORMATION
  Report Type: 
  Country: None (occurrence: None)
  Receive Date: 20060620
  Receipt Date: 20060608
  Transmission Date: 20061013
  Serious: Yes (Hospitalization)
  Sender: FDA-Public Use
  Company Number: HQWYE057909JUN06

PATIENT
  Sex: Female

DRUGS (1)
  1. TRIFEME-28 (LEVONORGESTREL/ETHINYL ESTRADIOL/INERT, TABLET) [Suspect]
     Dosage: ORAL
     Route: 048

REACTIONS (5)
  - DRUG DOSE OMISSION [None]
  - FOOD POISONING [None]
  - INAPPROPRIATE SCHEDULE OF DRUG ADMINISTRATION [None]
  - NAUSEA [None]
  - VOMITING [None]
